FAERS Safety Report 5601363-1 (Version None)
Quarter: 2008Q1

REPORT INFORMATION
  Report Type: 
  Country: None (occurrence: None)
  Receive Date: 20080118
  Receipt Date: 20080104
  Transmission Date: 20080703
  Serious: Yes (Death)
  Sender: FDA-Public Use
  Company Number: 2008001158

PATIENT
  Age: 25 Year
  Sex: Male

DRUGS (3)
  1. DIPHENHYDRAMINE HCL [Suspect]
     Indication: SUICIDE ATTEMPT
     Dosage: UNSPECIFIED, ORAL
     Route: 048
  2. IBUPROFEN [Suspect]
     Indication: SUICIDE ATTEMPT
     Dosage: UNSPECIFIED, ORAL
     Route: 048
  3. CAFFEINE CITRATE [Suspect]
     Indication: SUICIDE ATTEMPT
     Dosage: UNSPECIFIED, ORAL
     Route: 048

REACTIONS (1)
  - DRUG TOXICITY [None]
